FAERS Safety Report 8445568-3 (Version None)
Quarter: 2012Q2

REPORT INFORMATION
  Report Type: 
  Country: None (occurrence: None)
  Receive Date: 20120618
  Receipt Date: 20120615
  Transmission Date: 20120825
  Serious: Yes (Death, Life-Threatening, Hospitalization)
  Sender: FDA-Public Use
  Company Number: NL-AMGEN-NLDSP2012011503

PATIENT
  Age: 76 Year
  Sex: Male
  Weight: 73.968 kg

DRUGS (14)
  1. VINCRISTINE SULFATE [Concomitant]
     Indication: DIFFUSE LARGE B-CELL LYMPHOMA
     Dosage: 1 MG, UNK
     Route: 042
     Dates: start: 20101111
  2. SULFAMETHOXAZOLE AND TRIMETHOPRIM [Concomitant]
     Indication: PROPHYLAXIS
  3. VALACYCLOVIR HYDROCHLORIDE [Concomitant]
     Indication: VIRAL INFECTION
  4. DIFLUCAN [Concomitant]
     Indication: FUNGAL INFECTION
     Dosage: UNK
     Dates: start: 20101111
  5. PEGFILGRASTIM [Suspect]
     Indication: B-CELL LYMPHOMA
     Dosage: 6 MG, UNK
  6. RITUXIMAB [Concomitant]
     Indication: DIFFUSE LARGE B-CELL LYMPHOMA
     Dosage: 710 MG, UNK
     Route: 042
     Dates: start: 20101111
  7. CYCLOPHOSPHAMIDE [Concomitant]
     Indication: DIFFUSE LARGE B-CELL LYMPHOMA
     Dosage: 1430 MG, UNK
     Route: 042
     Dates: start: 20101111
  8. PHENAZEPAM [Concomitant]
     Indication: INSOMNIA
  9. DOXORUBICIN HCL [Concomitant]
     Indication: DIFFUSE LARGE B-CELL LYMPHOMA
     Dosage: 95 MG, UNK
     Route: 042
     Dates: start: 20101111
  10. ONDANSETRON [Concomitant]
     Indication: NAUSEA
     Dosage: UNK
     Route: 048
     Dates: start: 20110120, end: 20110122
  11. SULFAMETHOXAZOLE AND TRIMETHOPRIM [Concomitant]
     Indication: FUNGAL INFECTION
     Dosage: UNK UNK, QOD
     Dates: start: 20101111
  12. PREDNISONE [Concomitant]
     Indication: DIFFUSE LARGE B-CELL LYMPHOMA
     Dosage: 500 MG, UNK
     Route: 048
     Dates: start: 20101111
  13. DICLOFENAC SODIUM [Concomitant]
     Indication: PAIN
  14. ALLOPURINOL [Concomitant]
     Indication: GOUT

REACTIONS (3)
  - PULMONARY SEPSIS [None]
  - CARDIAC FAILURE [None]
  - DISEASE PROGRESSION [None]
